FAERS Safety Report 7201275-6 (Version None)
Quarter: 2010Q4

REPORT INFORMATION
  Report Type: 
  Country: None (occurrence: None)
  Receive Date: 20101227
  Receipt Date: 20101227
  Transmission Date: 20110411
  Serious: Yes (Hospitalization)
  Sender: FDA-Public Use
  Company Number: None

PATIENT
  Age: 62 Year
  Sex: Male
  Weight: 68.0396 kg

DRUGS (1)
  1. DAPTOMYCIN [Suspect]
     Indication: STAPHYLOCOCCAL ABSCESS
     Dosage: 500 MG DAILY IV BOLUS
     Route: 040
     Dates: start: 20100711, end: 20100728

REACTIONS (1)
  - EOSINOPHILIC PNEUMONIA [None]
